FAERS Safety Report 4899045-7 (Version None)
Quarter: 2006Q1

REPORT INFORMATION
  Report Type: 
  Country: None (occurrence: None)
  Receive Date: 20060202
  Receipt Date: 20060125
  Transmission Date: 20060701
  Serious: Yes (Hospitalization, Other)
  Sender: FDA-Public Use
  Company Number: JP-JNJFOC-20051103951

PATIENT
  Age: 43 Year
  Sex: Male

DRUGS (2)
  1. URO-TARIVID [Suspect]
     Indication: CYSTITIS
     Route: 048
     Dates: start: 20051101, end: 20051101
  2. PARACETAMOL [Concomitant]

REACTIONS (1)
  - GUILLAIN-BARRE SYNDROME [None]
